FAERS Safety Report 6994438-6 (Version None)
Quarter: 2010Q3

REPORT INFORMATION
  Report Type: 
  Country: None (occurrence: None)
  Receive Date: 20100917
  Receipt Date: 20100908
  Transmission Date: 20110219
  Serious: Yes (Other)
  Sender: FDA-Public Use
  Company Number: US-JNJFOC-20100903452

PATIENT
  Sex: Female
  Weight: 58.97 kg

DRUGS (11)
  1. FENTANYL CITRATE [Suspect]
     Indication: BACK PAIN
     Route: 062
  2. FENTANYL-100 [Suspect]
     Indication: BACK PAIN
     Route: 062
  3. PERCOCET [Concomitant]
     Indication: BREAKTHROUGH PAIN
     Dosage: 7.5/325 MG
     Route: 048
  4. VESICARE [Concomitant]
     Indication: PRODUCT USED FOR UNKNOWN INDICATION
     Route: 048
  5. PROGESTERONE [Concomitant]
     Indication: CERVICAL DYSPLASIA
     Dosage: ONE PER DAY FOR FIRST 10 DAYS OF MONTH
     Route: 048
  6. PROGESTERONE [Concomitant]
     Indication: UTERINE OPERATION
     Dosage: ONE PER DAY FOR FIRST 10 DAYS OF MONTH
     Route: 048
  7. DIVIGEL [Concomitant]
     Indication: PRODUCT USED FOR UNKNOWN INDICATION
     Route: 061
  8. CELEBREX [Concomitant]
     Indication: BACK PAIN
     Route: 048
  9. LYRICA [Concomitant]
     Indication: PRODUCT USED FOR UNKNOWN INDICATION
     Route: 048
  10. NEURONTIN [Concomitant]
     Indication: PRODUCT USED FOR UNKNOWN INDICATION
     Route: 048
  11. LASIX [Concomitant]
     Indication: WEIGHT INCREASED
     Route: 048

REACTIONS (4)
  - ANTIBIOTIC RESISTANT STAPHYLOCOCCUS TEST [None]
  - DEAFNESS [None]
  - FEELING ABNORMAL [None]
  - RESPIRATORY RATE DECREASED [None]
